FAERS Safety Report 8336154-4 (Version None)
Quarter: 2012Q1

REPORT INFORMATION
  Report Type: 
  Country: None (occurrence: None)
  Receive Date: 20120329
  Receipt Date: 20090615
  Transmission Date: 20120608
  Serious: Yes (Other)
  Sender: FDA-Public Use
  Company Number: PHEH2009US05451

PATIENT
  Sex: Male

DRUGS (2)
  1. EXELON [Suspect]
     Dosage: 4.6 MG, TRANSDERMAL
     Route: 062
  2. VITAMINS (NO INGREDIENTS SUBSTANCES) [Concomitant]

REACTIONS (3)
  - BRONCHITIS [None]
  - HEADACHE [None]
  - DEPRESSION [None]
